FAERS Safety Report 23752259 (Version 2)
Quarter: 2025Q1

REPORT INFORMATION
  Report Type: Spontaneous
  Country: US (occurrence: US)
  Receive Date: 20240417
  Receipt Date: 20250103
  Transmission Date: 20250409
  Serious: Yes (Hospitalization)
  Sender: SANOFI AVENTIS
  Company Number: US-SA-SAC20240416001446

PATIENT
  Sex: Female

DRUGS (16)
  1. DUPIXENT [Suspect]
     Active Substance: DUPILUMAB
     Indication: Asthma
     Dosage: 300 MG, QOW
     Route: 058
     Dates: end: 20241213
  2. MUCINEX [Concomitant]
     Active Substance: GUAIFENESIN
  3. BREO ELLIPTA [Concomitant]
     Active Substance: FLUTICASONE FUROATE\VILANTEROL TRIFENATATE
  4. ATENOLOL [Concomitant]
     Active Substance: ATENOLOL
  5. CARVEDILOL [Concomitant]
     Active Substance: CARVEDILOL
  6. PREDNISONE [Concomitant]
     Active Substance: PREDNISONE
  7. LISINOPRIL [Concomitant]
     Active Substance: LISINOPRIL
  8. NYSTATIN [Concomitant]
     Active Substance: NYSTATIN
  9. PREDNISONE [Concomitant]
     Active Substance: PREDNISONE
  10. IPRATROPIUM [Concomitant]
     Active Substance: IPRATROPIUM
  11. DALIRESP [Concomitant]
     Active Substance: ROFLUMILAST
  12. FLONASE ALLERGY RELIEF [Concomitant]
     Active Substance: FLUTICASONE PROPIONATE
  13. LEXAPRO [Concomitant]
     Active Substance: ESCITALOPRAM OXALATE
  14. SINGULAIR [Concomitant]
     Active Substance: MONTELUKAST SODIUM
  15. SYMBICORT [Concomitant]
     Active Substance: BUDESONIDE\FORMOTEROL FUMARATE DIHYDRATE
  16. ZYRTEC [Concomitant]
     Active Substance: CETIRIZINE HYDROCHLORIDE

REACTIONS (4)
  - COVID-19 [Not Recovered/Not Resolved]
  - Gas poisoning [Not Recovered/Not Resolved]
  - Dyspnoea [Recovering/Resolving]
  - Chronic obstructive pulmonary disease [Recovered/Resolved]
